FAERS Safety Report 5036591-X (Version None)
Quarter: 2006Q2

REPORT INFORMATION
  Report Type: 
  Country: None (occurrence: None)
  Receive Date: 20060531
  Receipt Date: 20060324
  Transmission Date: 20061013
  Serious: No
  Sender: FDA-Public Use
  Company Number: PHEH2006US03963

PATIENT
  Age: 65 Year
  Sex: Male

DRUGS (2)
  1. EXJADE [Suspect]
     Indication: MYELODYSPLASTIC SYNDROME
     Dosage: 1500 MG, QD
     Dates: start: 20060107, end: 20060319
  2. REVLIMID [Suspect]

REACTIONS (1)
  - VISUAL DISTURBANCE [None]
